FAERS Safety Report 4951818-8 (Version None)
Quarter: 2006Q1

REPORT INFORMATION
  Report Type: 
  Country: None (occurrence: None)
  Receive Date: 20060323
  Receipt Date: 20051004
  Transmission Date: 20060701
  Serious: Yes (Hospitalization, Disabling)
  Sender: FDA-Public Use
  Company Number: US-MERCK-0510USA03782

PATIENT
  Age: 61 Year
  Sex: Female
  Weight: 70 kg

DRUGS (1)
  1. VIOXX [Suspect]
     Indication: BACK PAIN
     Route: 048
     Dates: start: 20020625, end: 20050217

REACTIONS (5)
  - CARDIOVASCULAR DISORDER [None]
  - GROIN PAIN [None]
  - LOCAL SWELLING [None]
  - NERVE INJURY [None]
  - THROMBOSIS [None]
